FAERS Safety Report 7464054-0 (Version None)
Quarter: 2011Q2

REPORT INFORMATION
  Report Type: 
  Country: None (occurrence: None)
  Receive Date: 20110506
  Receipt Date: 20110412
  Transmission Date: 20111010
  Serious: Yes (Other)
  Sender: FDA-Public Use
  Company Number: PHHY2011VE31188

PATIENT
  Sex: Female

DRUGS (3)
  1. DANTOINAL [Concomitant]
     Indication: CONVULSION
  2. ZOLEDRONIC ACID [Suspect]
     Indication: OSTEOPOROSIS
     Dosage: 5 MG, UNK
     Route: 042
     Dates: start: 20100801
  3. CORMAC [Concomitant]
     Indication: HYPERTENSION

REACTIONS (5)
  - HEADACHE [None]
  - MOTOR DYSFUNCTION [None]
  - MOVEMENT DISORDER [None]
  - MENINGIOMA [None]
  - WHEELCHAIR USER [None]
